FAERS Safety Report 18893347 (Version 1)
Quarter: 2021Q1

REPORT INFORMATION
  Report Type: Report from Study
  Country: FR (occurrence: FR)
  Receive Date: 20210215
  Receipt Date: 20210215
  Transmission Date: 20210420
  Serious: Yes (Other)
  Sender: FDA-Public Use
  Company Number: FR-EMD SERONO-9217708

PATIENT
  Sex: Female

DRUGS (2)
  1. METFORMIN [Suspect]
     Active Substance: METFORMIN HYDROCHLORIDE
     Indication: TYPE 2 DIABETES MELLITUS
     Dosage: 3 TIMES PER DAY DURING MEALS
  2. LANTUS [Concomitant]
     Active Substance: INSULIN GLARGINE
     Indication: TYPE 2 DIABETES MELLITUS

REACTIONS (12)
  - Tremor [Unknown]
  - Confusional state [Unknown]
  - Hunger [Unknown]
  - Fatigue [Unknown]
  - Chills [Unknown]
  - Tachycardia [Unknown]
  - Headache [Unknown]
  - Diarrhoea [Unknown]
  - Angina pectoris [Unknown]
  - Hot flush [Unknown]
  - Dry mouth [Unknown]
  - Myalgia [Unknown]
